FAERS Safety Report 15371418 (Version 1)
Quarter: 2018Q3

REPORT INFORMATION
  Report Type: Spontaneous
  Country: US (occurrence: US)
  Receive Date: 20180905
  Receipt Date: 20180905
  Transmission Date: 20181010
  Serious: Yes (Hospitalization)
  Sender: FDA-Public Use
  Company Number: None

PATIENT
  Age: 82 Year
  Sex: Male
  Weight: 88.47 kg

DRUGS (10)
  1. BIMATOPROST. [Concomitant]
     Active Substance: BIMATOPROST
  2. AMLODIPINE BESYLATE. [Concomitant]
     Active Substance: AMLODIPINE BESYLATE
  3. DORZOLAMIDE [Concomitant]
     Active Substance: DORZOLAMIDE
  4. PROCHLORPERAZINE. [Concomitant]
     Active Substance: PROCHLORPERAZINE
  5. TRULICITY [Concomitant]
     Active Substance: DULAGLUTIDE
  6. ALLOPURINOL. [Concomitant]
     Active Substance: ALLOPURINOL
  7. AMLODIPINE BESYLATE?VALSARTAN [Concomitant]
     Active Substance: AMLODIPINE BESYLATE\VALSARTAN
  8. ROSUVASTATIN. [Concomitant]
     Active Substance: ROSUVASTATIN
  9. CAPECITABINE. [Suspect]
     Active Substance: CAPECITABINE
     Indication: RECTAL CANCER
     Route: 048
     Dates: start: 20180802, end: 20180905
  10. ASPIRIN. [Concomitant]
     Active Substance: ASPIRIN

REACTIONS (2)
  - Vomiting [None]
  - Pain [None]

NARRATIVE: CASE EVENT DATE: 20180905
